FAERS Safety Report 21480932 (Version 3)
Quarter: 2024Q2

REPORT INFORMATION
  Report Type: Spontaneous
  Country: TR (occurrence: TR)
  Receive Date: 20221019
  Receipt Date: 20240610
  Transmission Date: 20240715
  Serious: Yes (Hospitalization, Other)
  Sender: FDA-Public Use
  Company Number: TR-ABBOTT-2022A-1354170

PATIENT
  Sex: Male

DRUGS (4)
  1. PANCRELIPASE [Interacting]
     Active Substance: PANCRELIPASE
     Indication: Product used for unknown indication
     Dosage: REGULARLY; IN THE MORNING AND EVENING. DAILY DOSE: 50000 IU
     Route: 048
     Dates: end: 2022
  2. PANCRELIPASE [Interacting]
     Active Substance: PANCRELIPASE
     Indication: Product used for unknown indication
     Dosage: TIME INTERVAL: 0.33333333 DAYS: REGULARLY; IN THE MORNING, NOON AND EVENING. DAILY DOSE: 75000 IU...
     Route: 048
     Dates: end: 2022
  3. LOPERAMIDE [Interacting]
     Active Substance: LOPERAMIDE
     Indication: Diarrhoea
     Dosage: DAILY DOSE: 1X OR 2X DEPENDING ON STATUS OF DIARRHEA AND CEASED WHEN CONSTIPATION OCCURRED
     Route: 065
     Dates: end: 2022
  4. LOPERAMIDE [Interacting]
     Active Substance: LOPERAMIDE
     Indication: Diarrhoea
     Dosage: DAILY DOSE: 1X OR 2X DEPENDING ON THE STATUS OF THE DIARRHEA AND CEASED WHEN CONSTIPATION OCCURRED
     Route: 065
     Dates: end: 2022

REACTIONS (10)
  - Liver function test increased [Recovered/Resolved]
  - Hypophagia [Recovering/Resolving]
  - Diarrhoea [Unknown]
  - Alanine aminotransferase increased [Recovered/Resolved]
  - Constipation [Unknown]
  - Nausea [Recovering/Resolving]
  - Aspartate aminotransferase increased [Recovered/Resolved]
  - Vomiting [Recovering/Resolving]
  - Fluid replacement [Unknown]
  - Drug interaction [Unknown]

NARRATIVE: CASE EVENT DATE: 20220101
